FAERS Safety Report 5837515-5 (Version None)
Quarter: 2008Q3

REPORT INFORMATION
  Report Type: 
  Country: None (occurrence: None)
  Receive Date: 20080807
  Receipt Date: 20080728
  Transmission Date: 20090109
  Serious: Yes (Other)
  Sender: FDA-Public Use
  Company Number: US-PFIZER INC-2008063241

PATIENT
  Sex: Male

DRUGS (2)
  1. SOLU-MEDROL [Suspect]
     Indication: DIZZINESS
     Route: 001
  2. SOLU-MEDROL [Suspect]
     Indication: DEAFNESS

REACTIONS (4)
  - EAR PAIN [None]
  - INJECTION SITE PAIN [None]
  - MUSCLE SPASMS [None]
  - RESTLESSNESS [None]
